FAERS Safety Report 6275151-X (Version None)
Quarter: 2009Q3

REPORT INFORMATION
  Report Type: 
  Country: None (occurrence: None)
  Receive Date: 20090721
  Receipt Date: 20090709
  Transmission Date: 20100115
  Serious: Yes (Other)
  Sender: FDA-Public Use
  Company Number: HK-PFIZER INC-2009200430

PATIENT
  Age: 73 Year

DRUGS (9)
  1. BLINDED *NO SUBJECT DRUG [Suspect]
     Dosage: UNK
     Route: 048
     Dates: start: 20070323
  2. BLINDED *PLACEBO [Suspect]
     Dosage: UNK
     Route: 048
     Dates: start: 20070323
  3. BLINDED EPLERENONE [Suspect]
     Dosage: UNK
     Route: 048
     Dates: start: 20070323
  4. RAMIPRIL [Concomitant]
     Dosage: UNK
     Route: 048
     Dates: start: 20070130
  5. BISOPROLOL [Concomitant]
     Dosage: UNK
     Route: 048
     Dates: start: 20070317
  6. POTASSIUM CHLORIDE [Concomitant]
     Dosage: UNK
     Dates: start: 20070202
  7. FRUSEMIDE [Concomitant]
     Dosage: UNK
     Route: 048
     Dates: start: 20070130
  8. DIGOXIN [Concomitant]
     Dosage: UNK
     Route: 048
     Dates: start: 20070131
  9. WARFARIN [Concomitant]
     Dosage: UNK
     Route: 048
     Dates: start: 20070316

REACTIONS (1)
  - GOUT [None]
